FAERS Safety Report 6536730-5 (Version None)
Quarter: 2010Q1

REPORT INFORMATION
  Report Type: 
  Country: None (occurrence: None)
  Receive Date: 20100105
  Receipt Date: 20091221
  Transmission Date: 20100710
  Serious: Yes (Death, Hospitalization)
  Sender: FDA-Public Use
  Company Number: WAES 0909CHN00034

PATIENT
  Age: 53 Year
  Sex: Male

DRUGS (12)
  1. TAB LAROPIPRANT (+) NIACIN [Suspect]
     Indication: HIGH DENSITY LIPOPROTEIN DECREASED
     Dosage: UNK PO
     Route: 048
     Dates: start: 20071022, end: 20080712
  2. ZOCOR [Suspect]
     Indication: HYPERCHOLESTEROLAEMIA
     Dosage: 40 MG/DAILY PO
     Route: 048
     Dates: start: 20070629, end: 20070726
  3. VYTORIN [Suspect]
     Indication: HYPERCHOLESTEROLAEMIA
     Dosage: 10-40 MG/DAILY PO
     Route: 048
     Dates: start: 20070727, end: 20080712
  4. TAB LAROPIPRANT (+) NIACIN [Suspect]
     Indication: HIGH DENSITY LIPOPROTEIN DECREASED
     Dosage: 20MG-1 GM/DAILY PO 20MG-2 GM/DAILY PO
     Route: 048
     Dates: end: 20071021
  5. TAB LAROPIPRANT (+) NIACIN [Suspect]
     Indication: HIGH DENSITY LIPOPROTEIN DECREASED
     Dosage: 20MG-1 GM/DAILY PO 20MG-2 GM/DAILY PO
     Route: 048
     Dates: start: 20070827
  6. ASPIRIN [Concomitant]
  7. GLIPIZIDE [Concomitant]
  8. ISOSORBIDE MONONITRATE [Concomitant]
  9. METFORMIN [Concomitant]
  10. METOPROLOL [Concomitant]
  11. ROSIGLITAZONE MALEATE [Concomitant]
  12. VALSARTAN [Concomitant]

REACTIONS (5)
  - FALL [None]
  - HEPATIC CIRRHOSIS [None]
  - HYPOTENSION [None]
  - STRESS ULCER [None]
  - UPPER GASTROINTESTINAL HAEMORRHAGE [None]
